FAERS Safety Report 9528318 (Version 1)
Quarter: 2013Q3

REPORT INFORMATION
  Report Type: Spontaneous
  Country: GB (occurrence: GB)
  Receive Date: 20130917
  Receipt Date: 20130917
  Transmission Date: 20140515
  Serious: Yes (Other)
  Sender: FDA-Public Use
  Company Number: GB-PFIZER INC-2013264815

PATIENT
  Age: 50 Year
  Sex: Female
  Weight: 76.2 kg

DRUGS (6)
  1. PREGABALIN [Suspect]
     Indication: MYALGIA
     Dosage: 300 MG, UNK
     Route: 048
     Dates: start: 20130301, end: 20130710
  2. AMITRIPTYLINE [Concomitant]
     Dosage: UNK
  3. SERTRALINE HYDROCHLORIDE [Concomitant]
     Dosage: UNK
  4. VITAMIN B12 [Concomitant]
     Dosage: UNK
  5. BACLOFEN [Concomitant]
     Dosage: UNK
  6. CO-CODAMOL [Concomitant]
     Dosage: UNK

REACTIONS (14)
  - Migraine with aura [Recovered/Resolved]
  - Dysarthria [Recovering/Resolving]
  - Cold sweat [Recovering/Resolving]
  - Dyspepsia [Not Recovered/Not Resolved]
  - Anxiety [Recovering/Resolving]
  - Diarrhoea [Recovering/Resolving]
  - Vision blurred [Recovered/Resolved with Sequelae]
  - Hypoaesthesia [Not Recovered/Not Resolved]
  - Oropharyngeal pain [Recovering/Resolving]
  - Palpitations [Not Recovered/Not Resolved]
  - Tremor [Recovering/Resolving]
  - Headache [Unknown]
  - Abdominal pain upper [Unknown]
  - Myalgia [Unknown]
